FAERS Safety Report 24162013 (Version 2)
Quarter: 2024Q3

REPORT INFORMATION
  Report Type: Spontaneous
  Country: CA (occurrence: CA)
  Receive Date: 20240801
  Receipt Date: 20240909
  Transmission Date: 20241016
  Serious: Yes (Disabling, Other)
  Sender: TEVA
  Company Number: CA-TEVA-VS-3225801

PATIENT
  Age: 6 Month
  Sex: Female

DRUGS (11)
  1. METHOTREXATE [Suspect]
     Active Substance: METHOTREXATE
     Indication: Atypical teratoid/rhabdoid tumour of CNS
     Dosage: DOSE FORM: SOLUTION INTRA-ARTERIAL, DESCRIPTION: METHOTREXATE?INJECTION, USP SINGLE USE VIALS
     Route: 037
  2. METHOTREXATE [Suspect]
     Active Substance: METHOTREXATE
     Indication: Atypical teratoid/rhabdoid tumour of CNS
     Route: 065
  3. CYTARABINE [Suspect]
     Active Substance: CYTARABINE
     Indication: Atypical teratoid/rhabdoid tumour of CNS
     Dosage: DOSE FORM: POWDER FOR SOLUTION INTRATHECAL
     Route: 037
  4. CYTARABINE [Suspect]
     Active Substance: CYTARABINE
     Indication: Atypical teratoid/rhabdoid tumour of CNS
     Dosage: DOSE FORM : POWDER FOR SOLUTION INTRATHECAL
     Route: 065
  5. DOXORUBICIN [Suspect]
     Active Substance: DOXORUBICIN
     Indication: Atypical teratoid/rhabdoid tumour of CNS
     Dosage: DESCRIPTION: DOXORUBICIN HYDROCHLORIDE INJECTION, USP, DOSE FORM: SOLUTION INTRAVENOUS
     Route: 065
  6. DACTINOMYCIN [Suspect]
     Active Substance: DACTINOMYCIN
     Indication: Atypical teratoid/rhabdoid tumour of CNS
     Route: 065
  7. ALISERTIB [Concomitant]
     Active Substance: ALISERTIB
     Indication: Atypical teratoid/rhabdoid tumour of CNS
     Route: 048
  8. ALISERTIB [Concomitant]
     Active Substance: ALISERTIB
     Indication: Atypical teratoid/rhabdoid tumour of CNS
     Route: 048
  9. ETOPOSIDE [Suspect]
     Active Substance: ETOPOSIDE
     Indication: Atypical teratoid/rhabdoid tumour of CNS
     Route: 065
  10. HYDROCORTISONE [Suspect]
     Active Substance: HYDROCORTISONE\HYDROCORTISONE ACETATE
     Indication: Atypical teratoid/rhabdoid tumour of CNS
     Route: 037
  11. HYDROCORTISONE [Suspect]
     Active Substance: HYDROCORTISONE\HYDROCORTISONE ACETATE
     Indication: Atypical teratoid/rhabdoid tumour of CNS
     Route: 065

REACTIONS (5)
  - Deafness [Recovered/Resolved]
  - Speech disorder developmental [Recovered/Resolved]
  - Drug ineffective [Recovered/Resolved]
  - Off label use [Recovered/Resolved]
  - Hemiparesis [Recovered/Resolved]
